FAERS Safety Report 21599983 (Version 2)
Quarter: 2022Q4

REPORT INFORMATION
  Report Type: Spontaneous
  Country: BR (occurrence: BR)
  Receive Date: 20221116
  Receipt Date: 20221221
  Transmission Date: 20230113
  Serious: Yes (Hospitalization, Other)
  Sender: FDA-Public Use
  Company Number: BR-BIOGEN-2022BI01135473

PATIENT
  Sex: Female
  Weight: 72 kg

DRUGS (3)
  1. TYSABRI [Suspect]
     Active Substance: NATALIZUMAB
     Indication: Multiple sclerosis
     Route: 050
     Dates: start: 202106
  2. TYSABRI [Suspect]
     Active Substance: NATALIZUMAB
     Route: 050
  3. Desve (desvenlafaxine succinate monohydrate) [Concomitant]
     Indication: Anxiety
     Route: 050
     Dates: start: 202203

REACTIONS (35)
  - Acute stress disorder [Recovered/Resolved]
  - Intracranial mass [Unknown]
  - Headache [Not Recovered/Not Resolved]
  - Product dose omission issue [Recovered/Resolved]
  - Rheumatoid arthritis [Not Recovered/Not Resolved]
  - Myalgia [Recovered/Resolved]
  - Hallucination [Not Recovered/Not Resolved]
  - Memory impairment [Not Recovered/Not Resolved]
  - Somnambulism [Not Recovered/Not Resolved]
  - Bone pain [Unknown]
  - Arthropathy [Unknown]
  - Gait disturbance [Unknown]
  - Spinal pain [Unknown]
  - Paraesthesia [Unknown]
  - Burning sensation [Unknown]
  - Pain [Recovered/Resolved]
  - Depression [Not Recovered/Not Resolved]
  - Vitamin D decreased [Recovered/Resolved]
  - Carpal tunnel syndrome [Not Recovered/Not Resolved]
  - Hypoaesthesia [Unknown]
  - Osteoarthritis [Unknown]
  - Malaise [Unknown]
  - Eye irritation [Unknown]
  - Vision blurred [Unknown]
  - Asthenia [Unknown]
  - Feeling hot [Unknown]
  - Gait inability [Unknown]
  - Joint effusion [Unknown]
  - Cyst [Unknown]
  - Muscular weakness [Unknown]
  - Influenza [Unknown]
  - Nasal discharge discolouration [Unknown]
  - Back pain [Unknown]
  - Hypokinesia [Unknown]
  - Arthralgia [Not Recovered/Not Resolved]

NARRATIVE: CASE EVENT DATE: 20210101
